FAERS Safety Report 9398535 (Version 3)
Quarter: 2015Q2

REPORT INFORMATION
  Report Type: Spontaneous
  Country: US (occurrence: US)
  Receive Date: 20130712
  Receipt Date: 20150622
  Transmission Date: 20150821
  Serious: Yes (Hospitalization)
  Sender: FDA-Public Use
  Company Number: US-BAYER-2013-085210

PATIENT
  Age: 28 Year
  Sex: Female
  Weight: 94.79 kg

DRUGS (8)
  1. YASMIN [Suspect]
     Active Substance: DROSPIRENONE\ETHINYL ESTRADIOL
  2. ZOFRAN [Concomitant]
     Active Substance: ONDANSETRON HYDROCHLORIDE
  3. GIANVI [Suspect]
     Active Substance: DROSPIRENONE\ETHINYL ESTRADIOL
  4. PERCOCET [Concomitant]
     Active Substance: ACETAMINOPHEN\OXYCODONE HYDROCHLORIDE
  5. YAZ [Suspect]
     Active Substance: DROSPIRENONE\ETHINYL ESTRADIOL
  6. ADVIL [Concomitant]
     Active Substance: IBUPROFEN
  7. IRON [Concomitant]
     Active Substance: IRON
  8. PRENATAL VITAMINS [VIT C,VIT H,MIN NOS,VIT PP,RETINOL,VIT E,VIT B [Concomitant]

REACTIONS (15)
  - Anxiety [None]
  - Sleep disorder [None]
  - Pain [None]
  - Fear of disease [None]
  - Anhedonia [None]
  - High risk pregnancy [None]
  - Injury [Recovered/Resolved]
  - Chest pain [Recovered/Resolved]
  - Headache [None]
  - Pulmonary embolism [Recovered/Resolved]
  - Depression [None]
  - Emotional distress [None]
  - Dyspnoea [Recovered/Resolved]
  - Pain in extremity [None]
  - Back disorder [None]

NARRATIVE: CASE EVENT DATE: 20110511
